FAERS Safety Report 5174134-0 (Version None)
Quarter: 2006Q4

REPORT INFORMATION
  Report Type: 
  Country: None (occurrence: None)
  Receive Date: 20061214
  Receipt Date: 20060407
  Transmission Date: 20070319
  Serious: No
  Sender: FDA-Public Use
  Company Number: US-AMGEN-US175470

PATIENT
  Sex: Male
  Weight: 158.9 kg

DRUGS (3)
  1. ENBREL [Suspect]
     Indication: RHEUMATOID ARTHRITIS
     Route: 058
     Dates: start: 20040521, end: 20060301
  2. METHOTREXATE [Suspect]
     Route: 065
     Dates: start: 20030101, end: 20060301
  3. METFORMIN [Concomitant]

REACTIONS (1)
  - NEUTROPENIA [None]
